FAERS Safety Report 4405473-6 (Version None)
Quarter: 2004Q3

REPORT INFORMATION
  Report Type: 
  Country: None (occurrence: None)
  Receive Date: 20040715
  Receipt Date: 20040629
  Transmission Date: 20050211
  Serious: Yes (Other)
  Sender: FDA-Public Use
  Company Number: 166078

PATIENT
  Age: 34 Year
  Sex: Female
  Weight: 54 kg

DRUGS (5)
  1. AVONEX [Suspect]
     Indication: MULTIPLE SCLEROSIS
     Dosage: 30 MCG QW IM
     Dates: start: 20020324, end: 20020619
  2. AVONEX [Suspect]
     Indication: MULTIPLE SCLEROSIS
     Dosage: 30 MCG QW IM
     Dates: start: 20020703, end: 20020903
  3. AVONEX [Suspect]
     Indication: MULTIPLE SCLEROSIS
     Dosage: 30 MCG QW IM
     Dates: start: 20021118, end: 20030513
  4. IUD [Concomitant]
  5. ANAFRANIL [Concomitant]

REACTIONS (11)
  - ANXIETY [None]
  - ASTHENIA [None]
  - CANDIDIASIS [None]
  - DEPRESSION [None]
  - GLOSSITIS [None]
  - HEADACHE [None]
  - INJECTION SITE PAIN [None]
  - INSOMNIA [None]
  - NAUSEA [None]
  - ORAL CANDIDIASIS [None]
  - URTICARIA [None]
